FAERS Safety Report 7302935-9 (Version None)
Quarter: 2011Q1

REPORT INFORMATION
  Report Type: 
  Country: None (occurrence: None)
  Receive Date: 20110218
  Receipt Date: 20110211
  Transmission Date: 20110831
  Serious: Yes (Hospitalization)
  Sender: FDA-Public Use
  Company Number: US-AMGEN-USASP2011008415

PATIENT
  Age: 43 Year
  Sex: Male

DRUGS (2)
  1. ENBREL [Suspect]
     Indication: PSORIATIC ARTHROPATHY
     Dosage: 50 MG, 2 TIMES/WK
     Dates: start: 20061201, end: 20101001
  2. ENBREL [Suspect]
     Indication: PSORIASIS

REACTIONS (4)
  - PRURITUS [None]
  - FEELING HOT [None]
  - ARTHRITIS [None]
  - PSORIASIS [None]
